FAERS Safety Report 4309385-8 (Version None)
Quarter: 2004Q1

REPORT INFORMATION
  Report Type: 
  Country: None (occurrence: None)
  Receive Date: 20040302
  Receipt Date: 20040213
  Transmission Date: 20041129
  Serious: Yes (Other)
  Sender: FDA-Public Use
  Company Number: US-ROCHE-359897

PATIENT
  Age: 41 Year
  Sex: Female
  Weight: 68 kg

DRUGS (9)
  1. PEG-INTERFERON ALFA 2A (RO 25-8310) [Suspect]
     Route: 058
     Dates: start: 20010118
  2. RIBAVIRIN [Suspect]
     Dosage: 400 MG IN THE MORNING AND 600 MG IN THE EVENING.
     Route: 048
     Dates: start: 20010118
  3. NORVIR [Concomitant]
     Route: 048
     Dates: start: 19990713, end: 20010409
  4. VIDEX [Concomitant]
     Route: 048
     Dates: start: 19970929, end: 20010409
  5. CRIXIVAN [Concomitant]
     Route: 048
     Dates: start: 19970929, end: 20010409
  6. STAVUDINE [Concomitant]
     Route: 048
     Dates: start: 19970929, end: 20010409
  7. TYLENOL [Concomitant]
     Dates: start: 20010105
  8. HYDROCORTISONE [Concomitant]
     Dates: start: 19990211
  9. M.V.I. [Concomitant]
     Route: 048
     Dates: start: 20000115

REACTIONS (4)
  - BLOOD AMYLASE INCREASED [None]
  - DIZZINESS [None]
  - FATIGUE [None]
  - FEELING ABNORMAL [None]
